FAERS Safety Report 16044588 (Version 1)
Quarter: 2019Q1

REPORT INFORMATION
  Report Type: Spontaneous
  Country: US (occurrence: US)
  Receive Date: 20190306
  Receipt Date: 20190306
  Transmission Date: 20190418
  Serious: No
  Sender: FDA-Public Use
  Company Number: US-AMGEN-USASP2019034990

PATIENT
  Age: 48 Year
  Sex: Male

DRUGS (1)
  1. TALIMOGENE LAHERPAREPVEC [Suspect]
     Active Substance: TALIMOGENE LAHERPAREPVEC
     Indication: SUPERFICIAL SPREADING MELANOMA STAGE IV
     Dosage: UNK UNK, CYCLICAL (3 TO 4 ML OF TOTAL VOLUME)
     Route: 026

REACTIONS (2)
  - Pigmentation disorder [Unknown]
  - Malaise [Unknown]
